FAERS Safety Report 17358442 (Version 1)
Quarter: 2020Q1

REPORT INFORMATION
  Report Type: Report from Study
  Country: PL (occurrence: PL)
  Receive Date: 20200201
  Receipt Date: 20200201
  Transmission Date: 20200409
  Serious: Yes (Other)
  Sender: FDA-Public Use
  Company Number: PL-BAYER-2020-015574

PATIENT
  Sex: Female

DRUGS (1)
  1. BETAFERON [Suspect]
     Active Substance: INTERFERON BETA-1B
     Indication: MULTIPLE SCLEROSIS
     Dosage: UNK
     Route: 058
     Dates: end: 20200123

REACTIONS (1)
  - Subcutaneous abscess [None]

NARRATIVE: CASE EVENT DATE: 20200123
